FAERS Safety Report 10253757 (Version 1)
Quarter: 2014Q2

REPORT INFORMATION
  Report Type: Spontaneous
  Country: FR (occurrence: FR)
  Receive Date: 20140623
  Receipt Date: 20140623
  Transmission Date: 20141212
  Serious: Yes (Death)
  Sender: FDA-Public Use
  Company Number: FR-PFIZER INC-2014170813

PATIENT
  Age: 37 Year
  Sex: Male

DRUGS (1)
  1. LYRICA [Suspect]
     Indication: ANXIETY
     Dosage: 50 MG, UNK

REACTIONS (3)
  - Electric shock [Fatal]
  - Euphoric mood [Unknown]
  - Fatigue [Unknown]
